FAERS Safety Report 8942496 (Version 1)
Quarter: 2012Q4

REPORT INFORMATION
  Report Type: 
  Country: US (occurrence: US)
  Receive Date: 20121204
  Receipt Date: 20121204
  Transmission Date: 20130627
  Serious: Yes (Death)
  Sender: FDA-Public Use
  Company Number: US-AMGEN-USASP2011069478

PATIENT
  Age: 37 Year
  Sex: Female

DRUGS (3)
  1. XGEVA [Suspect]
     Indication: METASTASES TO BONE
     Dosage: 120 mg, q4wk
     Dates: end: 20111110
  2. NEULASTA [Suspect]
     Indication: CHEMOTHERAPY
     Dosage: 6 mg, UNK
     Dates: start: 20110718, end: 20110718
  3. NEULASTA [Suspect]
     Dosage: 6 mg, UNK
     Dates: start: 20110729, end: 20110729

REACTIONS (1)
  - Death [Fatal]
